FAERS Safety Report 23378203 (Version 1)
Quarter: 2024Q1

REPORT INFORMATION
  Report Type: Spontaneous
  Country: FR (occurrence: FR)
  Receive Date: 20240108
  Receipt Date: 20240108
  Transmission Date: 20240410
  Serious: Yes (Hospitalization, Other)
  Sender: FDA-Public Use
  Company Number: FR-AstraZeneca-2023A183283

PATIENT
  Age: 79 Year
  Sex: Male
  Weight: 112 kg

DRUGS (15)
  1. PEMETREXED [Suspect]
     Active Substance: PEMETREXED
     Indication: Non-small cell lung cancer
     Dosage: 500 MG/M2, EVERY 3 WEEKS
     Dates: start: 20230609, end: 20230609
  2. PEMETREXED [Suspect]
     Active Substance: PEMETREXED
     Dosage: 500 MG/M2, EVERY 3 WEEKS
     Dates: start: 20230703, end: 20230703
  3. PEMETREXED [Suspect]
     Active Substance: PEMETREXED
     Dosage: 500 MG/M2, EVERY 3 WEEKS
     Dates: start: 20230724, end: 20230724
  4. CARBOPLATIN [Suspect]
     Active Substance: CARBOPLATIN
     Indication: Non-small cell lung cancer
     Dosage: 550 MG, EVERY 3 WEEKS
     Dates: start: 20230609, end: 20230609
  5. CARBOPLATIN [Suspect]
     Active Substance: CARBOPLATIN
     Dosage: 550 MG, EVERY 3 WEEKS
     Dates: start: 20230703, end: 20230703
  6. CARBOPLATIN [Suspect]
     Active Substance: CARBOPLATIN
     Dosage: 480 MG, EVERY 3 WEEKS
     Dates: start: 20230724, end: 20230724
  7. UNSPECIFIED INGREDIENT [Suspect]
     Active Substance: UNSPECIFIED INGREDIENT
     Indication: Non-small cell lung cancer
     Dosage: 750 MG, EVERY 3 WEEKS
     Route: 042
     Dates: start: 20230609, end: 20230609
  8. UNSPECIFIED INGREDIENT [Suspect]
     Active Substance: UNSPECIFIED INGREDIENT
     Dosage: 750 MG, EVERY 3 WEEKS
     Route: 042
     Dates: start: 20230703, end: 20230703
  9. UNSPECIFIED INGREDIENT [Suspect]
     Active Substance: UNSPECIFIED INGREDIENT
     Dosage: 750 MG, EVERY 3 WEEKS
     Route: 042
     Dates: start: 20230724, end: 20230724
  10. FOLIC ACID [Concomitant]
     Active Substance: FOLIC ACID
     Indication: Vitamin supplementation
     Dosage: 0.4 MG, 1X/DAY
     Route: 048
     Dates: start: 20230605
  11. VITAMIN B12 [Concomitant]
     Active Substance: CYANOCOBALAMIN
     Indication: Vitamin supplementation
     Dosage: 1000 MG, SINGLE
     Route: 030
     Dates: start: 20230605
  12. ASPIRIN [Concomitant]
     Active Substance: ASPIRIN
     Indication: Thrombosis prophylaxis
     Dosage: 75 MG, 1X/DAY
     Route: 048
     Dates: start: 2010, end: 20230804
  13. DICLOFENAC [Concomitant]
     Active Substance: DICLOFENAC
     Indication: Hypertension
     Dosage: 75 MG, 1X/DAY
     Route: 048
     Dates: start: 202301, end: 20230807
  14. ATORVASTATIN CALCIUM [Concomitant]
     Active Substance: ATORVASTATIN CALCIUM
     Indication: Hypercholesterolaemia
     Dosage: 10 MG, 1X/DAY
     Route: 048
     Dates: start: 2010
  15. BISOPROLOL [Concomitant]
     Active Substance: BISOPROLOL\BISOPROLOL FUMARATE
     Indication: Hypertension
     Dosage: 10 MG, 1X/DAY
     Route: 048
     Dates: start: 2010

REACTIONS (2)
  - Febrile neutropenia [Recovered/Resolved]
  - Off label use [Unknown]

NARRATIVE: CASE EVENT DATE: 20230609
